FAERS Safety Report 24165557 (Version 1)
Quarter: 2024Q3

REPORT INFORMATION
  Report Type: Spontaneous
  Country: US (occurrence: US)
  Receive Date: 20240802
  Receipt Date: 20240802
  Transmission Date: 20241016
  Serious: No
  Sender: VERRICA PHARMACEUTICALS
  Company Number: US-VERRICA PHARMACEUTICALS INC.-2024VER000027

PATIENT
  Age: 4 Year
  Sex: Female

DRUGS (1)
  1. YCANTH [Suspect]
     Active Substance: CANTHARIDIN
     Indication: Molluscum contagiosum
     Dosage: UNK
     Route: 061

REACTIONS (2)
  - Drug ineffective [Unknown]
  - Product physical consistency issue [Unknown]
